FAERS Safety Report 9710279 (Version 2)
Quarter: 2013Q4

REPORT INFORMATION
  Report Type: Spontaneous
  Country: US (occurrence: US)
  Receive Date: 20131126
  Receipt Date: 20131126
  Transmission Date: 20140711
  Serious: No
  Sender: FDA-Public Use
  Company Number: US-BRISTOL-MYERS SQUIBB COMPANY-18753731

PATIENT
  Sex: Female

DRUGS (2)
  1. BYETTA [Suspect]
     Indication: TYPE 2 DIABETES MELLITUS
     Route: 058
  2. BYDUREON 2MG VIAL + SYRINGE [Suspect]

REACTIONS (4)
  - Blood glucose increased [Recovered/Resolved]
  - Sinusitis [Recovered/Resolved]
  - Product quality issue [Unknown]
  - Injection site haemorrhage [Unknown]
